FAERS Safety Report 22001971 (Version 3)
Quarter: 2023Q1

REPORT INFORMATION
  Report Type: Report from Study
  Country: US (occurrence: US)
  Receive Date: 20230216
  Receipt Date: 20230323
  Transmission Date: 20230417
  Serious: Yes (Death, Other)
  Sender: FDA-Public Use
  Company Number: US-ACADIA PHARMACEUTICALS INC.-ACA-2023-PIM-000333

PATIENT
  Age: 92 Year
  Sex: Male

DRUGS (16)
  1. NUPLAZID [Suspect]
     Active Substance: PIMAVANSERIN TARTRATE
     Indication: Parkinson^s disease psychosis
     Dosage: 34 MILLIGRAM, QD
     Route: 048
     Dates: start: 20230113
  2. NUPLAZID [Suspect]
     Active Substance: PIMAVANSERIN TARTRATE
     Dosage: 34 MILLIGRAM, QD
     Route: 048
     Dates: start: 20230126, end: 20230226
  3. ELIQUIS [Concomitant]
     Active Substance: APIXABAN
  4. MINERALS\VITAMINS [Concomitant]
     Active Substance: MINERALS\VITAMINS
  5. FUROSEMIDE [Concomitant]
     Active Substance: FUROSEMIDE
  6. CARBIDOPA [Concomitant]
     Active Substance: CARBIDOPA
  7. ALLOPURINOL [Concomitant]
     Active Substance: ALLOPURINOL
  8. MIRTAZAPINE [Concomitant]
     Active Substance: MIRTAZAPINE
  9. METOPROLOL [Concomitant]
     Active Substance: METOPROLOL
  10. OMEPRAZOLE [Concomitant]
     Active Substance: OMEPRAZOLE
  11. MIRALAX [Concomitant]
     Active Substance: POLYETHYLENE GLYCOL 3350
  12. SIMVASTATIN [Concomitant]
     Active Substance: SIMVASTATIN
  13. FOLIC ACID [Concomitant]
     Active Substance: FOLIC ACID
  14. MELATONIN [Concomitant]
     Active Substance: MELATONIN
  15. VITAMIN B12 [Concomitant]
     Active Substance: CYANOCOBALAMIN
  16. VITAMIN D3 [Concomitant]
     Active Substance: CHOLECALCIFEROL

REACTIONS (3)
  - Death [Fatal]
  - Sleep disorder [Not Recovered/Not Resolved]
  - Hallucination [Not Recovered/Not Resolved]

NARRATIVE: CASE EVENT DATE: 20230113
